FAERS Safety Report 7276333-0 (Version None)
Quarter: 2011Q1

REPORT INFORMATION
  Report Type: 
  Country: None (occurrence: None)
  Receive Date: 20110204
  Receipt Date: 20110126
  Transmission Date: 20110831
  Serious: Yes (Other)
  Sender: FDA-Public Use
  Company Number: US-US-EMD SERONO, INC.-7025998

PATIENT
  Sex: Female
  Weight: 113 kg

DRUGS (6)
  1. REBIF [Suspect]
     Indication: MULTIPLE SCLEROSIS
     Route: 058
     Dates: start: 20100324
  2. VALERIAN [Concomitant]
     Indication: SLEEP DISORDER
     Dates: start: 20101005
  3. PREDNISONE [Concomitant]
     Dates: start: 20100901
  4. ACETAMINOPHEN AND HYDROCODONE BITARTRATE [Concomitant]
     Indication: PAIN
     Dates: start: 20101215
  5. DARVOCET-N 100 [Concomitant]
     Indication: PAIN
  6. CELEXA [Concomitant]
     Dates: start: 20101005

REACTIONS (7)
  - HEADACHE [None]
  - OPTIC NEURITIS [None]
  - MUSCLE SPASMS [None]
  - INJECTION SITE PAIN [None]
  - INFLUENZA LIKE ILLNESS [None]
  - MULTIPLE SCLEROSIS RELAPSE [None]
  - ANXIETY [None]
